FAERS Safety Report 12847386 (Version 3)
Quarter: 2017Q1

REPORT INFORMATION
  Report Type: Report from Study
  Country: US (occurrence: US)
  Receive Date: 20161014
  Receipt Date: 20170328
  Transmission Date: 20170428
  Serious: Yes (Hospitalization, Other)
  Sender: FDA-Public Use
  Company Number: US-BAYER-2016-193295

PATIENT
  Age: 76 Year
  Sex: Male

DRUGS (9)
  1. XOFIGO [Suspect]
     Active Substance: RADIUM RA-223 DICHLORIDE
     Indication: HORMONE-REFRACTORY PROSTATE CANCER
     Dosage: AT 143.6 UCI
     Route: 042
     Dates: start: 20160504, end: 20160504
  2. ELIGARD [Concomitant]
     Active Substance: LEUPROLIDE ACETATE
     Indication: METASTASES TO BONE
     Dosage: UNK
     Dates: start: 20160727
  3. XOFIGO [Suspect]
     Active Substance: RADIUM RA-223 DICHLORIDE
     Indication: METASTASES TO BONE
     Dosage: 142.2 UCI
     Route: 042
     Dates: start: 20160601, end: 20160601
  4. ELIGARD [Concomitant]
     Active Substance: LEUPROLIDE ACETATE
     Indication: PROSTATE CANCER STAGE IV
     Dosage: UNK
     Dates: start: 20160427
  5. ELIGARD [Concomitant]
     Active Substance: LEUPROLIDE ACETATE
     Indication: PROSTATE CANCER STAGE IV
     Dosage: 22.5MG EVERY 12 HOURS
     Dates: start: 20160919
  6. XOFIGO [Suspect]
     Active Substance: RADIUM RA-223 DICHLORIDE
     Indication: HORMONE-REFRACTORY PROSTATE CANCER
     Dosage: 138.8 UCI
     Route: 042
     Dates: start: 20160629, end: 20160629
  7. XOFIGO [Suspect]
     Active Substance: RADIUM RA-223 DICHLORIDE
     Indication: HORMONE-REFRACTORY PROSTATE CANCER
     Dosage: 139.6 UCI
     Route: 042
     Dates: start: 20160727, end: 20160727
  8. XOFIGO [Suspect]
     Active Substance: RADIUM RA-223 DICHLORIDE
     Indication: HORMONE-REFRACTORY PROSTATE CANCER
     Dosage: 140.2 UCI
     Route: 042
     Dates: start: 20160825, end: 20160825
  9. XOFIGO [Suspect]
     Active Substance: RADIUM RA-223 DICHLORIDE
     Indication: HORMONE-REFRACTORY PROSTATE CANCER
     Dosage: 138.2 UCI
     Route: 042
     Dates: start: 20161005, end: 20161005

REACTIONS (7)
  - Femur fracture [None]
  - Myocardial infarction [None]
  - Coronary artery bypass [None]
  - Acute myocardial infarction [None]
  - Cardiac disorder [None]
  - Vomiting [None]
  - Adverse event [None]

NARRATIVE: CASE EVENT DATE: 2016
